FAERS Safety Report 15595405 (Version 3)
Quarter: 2019Q1

REPORT INFORMATION
  Report Type: Spontaneous
  Country: US (occurrence: US)
  Receive Date: 20181107
  Receipt Date: 20190313
  Transmission Date: 20190417
  Serious: Yes (Disabling, Other)
  Sender: FDA-Public Use
  Company Number: US-JNJFOC-20040502011

PATIENT
  Age: 40 Year
  Sex: Male

DRUGS (7)
  1. XANAX [Concomitant]
     Active Substance: ALPRAZOLAM
     Indication: ANXIETY
     Route: 065
  2. FLEXERIL [Suspect]
     Active Substance: CYCLOBENZAPRINE HYDROCHLORIDE
     Indication: MUSCLE SPASMS
     Route: 065
  3. XANAX [Concomitant]
     Active Substance: ALPRAZOLAM
     Indication: SLEEP DISORDER
     Route: 065
  4. AMBIEN [Concomitant]
     Active Substance: ZOLPIDEM TARTRATE
     Indication: SLEEP DISORDER
     Route: 065
  5. CONCERTA [Suspect]
     Active Substance: METHYLPHENIDATE HYDROCHLORIDE
     Indication: ATTENTION DEFICIT/HYPERACTIVITY DISORDER
     Route: 048
     Dates: start: 20040317, end: 20040322
  6. EFFEXOR [Concomitant]
     Active Substance: VENLAFAXINE HYDROCHLORIDE
     Route: 065
  7. PAXIL [Concomitant]
     Active Substance: PAROXETINE HYDROCHLORIDE
     Route: 065

REACTIONS (19)
  - Suicidal ideation [Recovered/Resolved]
  - Generalised anxiety disorder [Unknown]
  - Muscle twitching [Not Recovered/Not Resolved]
  - Insomnia [Recovered/Resolved]
  - Product use issue [Unknown]
  - Palpitations [Not Recovered/Not Resolved]
  - Weight decreased [Unknown]
  - Agitation [Unknown]
  - Off label use [Unknown]
  - Affect lability [Recovered/Resolved]
  - Homicidal ideation [Recovered/Resolved]
  - Abdominal pain upper [Not Recovered/Not Resolved]
  - Psychotic disorder [Recovered/Resolved]
  - Toxicity to various agents [Unknown]
  - Post-traumatic stress disorder [Not Recovered/Not Resolved]
  - Headache [Not Recovered/Not Resolved]
  - Hypertension [Not Recovered/Not Resolved]
  - Cognitive disorder [Not Recovered/Not Resolved]
  - Persistent depressive disorder [Not Recovered/Not Resolved]

NARRATIVE: CASE EVENT DATE: 20040317
